FAERS Safety Report 9204791 (Version 1)
Quarter: 2013Q2

REPORT INFORMATION
  Report Type: Spontaneous
  Country: US (occurrence: None)
  Receive Date: 20130401
  Receipt Date: 20130401
  Transmission Date: 20140414
  Serious: Yes (Other)
  Sender: FDA-Public Use
  Company Number: None

PATIENT
  Age: 42 Year
  Sex: Male
  Weight: 70.5 kg

DRUGS (9)
  1. PREZISTA [Suspect]
     Indication: HIV INFECTION
     Route: 048
     Dates: start: 20130228, end: 20130301
  2. PREZISTA [Suspect]
     Indication: ACQUIRED IMMUNODEFICIENCY SYNDROME
     Route: 048
     Dates: start: 20130228, end: 20130301
  3. ALLOPURINOL [Concomitant]
  4. LISINOPRIL [Concomitant]
  5. RANITIDINE [Concomitant]
  6. CRESTOR [Concomitant]
  7. VALGANCYCLOVIR [Concomitant]
  8. VICODIN [Concomitant]
  9. LOVAZA [Concomitant]

REACTIONS (4)
  - Drug intolerance [None]
  - Nausea [None]
  - Vomiting [None]
  - Reaction to drug excipients [None]
